FAERS Safety Report 23786073 (Version 7)
Quarter: 2025Q3

REPORT INFORMATION
  Report Type: Report from Study
  Country: JP (occurrence: JP)
  Receive Date: 20240426
  Receipt Date: 20250715
  Transmission Date: 20251021
  Serious: Yes (Death, Other)
  Sender: GENMAB
  Company Number: JP-GENMAB-2024-00488AA

PATIENT
  Age: 66 Year
  Sex: Male
  Weight: 64 kg

DRUGS (7)
  1. EPKINLY [Suspect]
     Active Substance: EPCORITAMAB-BYSP
     Indication: High grade B-cell lymphoma refractory
     Route: 058
     Dates: start: 20240130, end: 20240130
  2. EPKINLY [Suspect]
     Active Substance: EPCORITAMAB-BYSP
     Route: 058
     Dates: start: 20240207, end: 20240207
  3. EPKINLY [Suspect]
     Active Substance: EPCORITAMAB-BYSP
     Dosage: 48 MILLIGRAM, WEEKLY, UP TO THE SECOND ADMINISTRATION IN CYCLE 2
     Route: 058
     Dates: start: 20240214, end: 20240306
  4. PREDONINE [Concomitant]
     Active Substance: PREDNISOLONE
     Indication: Prophylaxis
     Dates: start: 20240130, end: 20240309
  5. POLARAMINE [Concomitant]
     Active Substance: DEXCHLORPHENIRAMINE MALEATE
     Indication: Prophylaxis
     Dates: start: 202401, end: 202403
  6. ACETAMINOPHEN [Concomitant]
     Active Substance: ACETAMINOPHEN
     Indication: Prophylaxis
     Dates: start: 202401, end: 202403
  7. CYTARABINE [Concomitant]
     Active Substance: CYTARABINE
     Indication: High grade B-cell lymphoma refractory
     Dates: start: 202401, end: 202401

REACTIONS (3)
  - Cytokine release syndrome [Recovered/Resolved]
  - Immune effector cell-associated neurotoxicity syndrome [Recovering/Resolving]
  - High grade B-cell lymphoma refractory [Fatal]

NARRATIVE: CASE EVENT DATE: 20240206
